FAERS Safety Report 9911683 (Version 3)
Quarter: 2014Q1

REPORT INFORMATION
  Report Type: Report from Study
  Country: US (occurrence: US)
  Receive Date: 20140219
  Receipt Date: 20140320
  Transmission Date: 20141002
  Serious: Yes (Hospitalization)
  Sender: FDA-Public Use
  Company Number: US-GLAXOSMITHKLINE-Z0001943A

PATIENT
  Age: 58 Year
  Sex: Female

DRUGS (1)
  1. OFATUMUMAB [Suspect]
     Indication: WALDENSTROM^S MACROGLOBULINAEMIA
     Route: 042
     Dates: start: 20090923

REACTIONS (1)
  - Haemolysis [Recovered/Resolved]
